FAERS Safety Report 8964747 (Version 2)
Quarter: 2012Q4

REPORT INFORMATION
  Report Type: 
  Country: US (occurrence: US)
  Receive Date: 20121214
  Receipt Date: 20121217
  Transmission Date: 20130627
  Serious: No
  Sender: FDA-Public Use
  Company Number: US-BAYER-2012-127932

PATIENT
  Age: 76 Year
  Sex: Female
  Weight: 68 kg

DRUGS (5)
  1. ALEVE CAPLET/TABLET,MIDOL EXTENDED RELIEF CAPLET [Suspect]
     Indication: BACK ACHE
     Dosage: 2 DF, UNK
     Route: 048
  2. ANALGESICS [Concomitant]
  3. LEVOTHYROXINE [Concomitant]
  4. LOSARTAN [Concomitant]
  5. HYDROCHLOROTHIAZIDE W/METOPROLOL [Concomitant]

REACTIONS (11)
  - Non-cardiac chest pain [Recovered/Resolved]
  - Erythema [Recovered/Resolved]
  - Oropharyngeal pain [Recovered/Resolved]
  - Rash pruritic [Recovered/Resolved]
  - Tinnitus [Recovered/Resolved]
  - Vomiting [Recovered/Resolved]
  - Drug interaction [None]
  - Oropharyngeal discomfort [None]
  - Dysgeusia [None]
  - Abdominal pain upper [None]
  - Oedema peripheral [None]
